FAERS Safety Report 10086862 (Version 1)
Quarter: 2014Q2

REPORT INFORMATION
  Report Type: Spontaneous
  Country: NL (occurrence: NL)
  Receive Date: 20140418
  Receipt Date: 20140418
  Transmission Date: 20141212
  Serious: Yes (Other)
  Sender: FDA-Public Use
  Company Number: NL-ASTRAZENECA-2014SE25314

PATIENT
  Age: 61 Year
  Sex: Male

DRUGS (5)
  1. CRESTOR [Suspect]
     Indication: BLOOD CHOLESTEROL INCREASED
     Route: 048
     Dates: start: 20140221, end: 20140312
  2. DILTIAZEM [Interacting]
     Indication: ANGINA PECTORIS
     Route: 048
     Dates: start: 20140224
  3. HYDROCHLOORTHIAZIDE [Concomitant]
     Route: 048
  4. RAMIPRIL [Concomitant]
     Route: 048
  5. ASCAL BRISPER CARDIO-NEURO BRUIS [Concomitant]
     Route: 048

REACTIONS (2)
  - Drug interaction [Recovered/Resolved]
  - Hepatitis acute [Recovered/Resolved]
